FAERS Safety Report 10529765 (Version 2)
Quarter: 2014Q4

REPORT INFORMATION
  Report Type: Spontaneous
  Country: None (occurrence: None)
  Receive Date: 20141017
  Receipt Date: 20141211
  Transmission Date: 20150528
  Serious: Yes (Hospitalization)
  Sender: FDA-Public Use
  Company Number: AEGR000794

PATIENT
  Age: 38 Year
  Sex: Female
  Weight: 117 kg

DRUGS (12)
  1. NITROLINGUAL (GLYCERYL TRINITRATE) [Concomitant]
  2. OMEGA 3 (FISH OIL) [Concomitant]
     Active Substance: OMEGA-3 FATTY ACIDS
  3. PLAVIX (CLOPIDOGREL BISULFATE) [Concomitant]
  4. ZETIA [Concomitant]
     Active Substance: EZETIMIBE
  5. JUXTAPID [Suspect]
     Active Substance: LOMITAPIDE MESYLATE
     Indication: TYPE IIA HYPERLIPIDAEMIA
     Dates: start: 20130716, end: 20131125
  6. CRESTOR [Concomitant]
     Active Substance: ROSUVASTATIN CALCIUM
  7. ASPIRIN (ACETYLSALICYLIC ACID) [Concomitant]
     Active Substance: ASPIRIN
  8. HYDROCHLOROTHIAZIDE. [Concomitant]
     Active Substance: HYDROCHLOROTHIAZIDE
  9. BYSTOLIC [Concomitant]
     Active Substance: NEBIVOLOL HYDROCHLORIDE
  10. LOSARTAN (LOSARTAN POTASSIUM) [Concomitant]
  11. PRILOSEC (OMEPRAZOLE MAGNESIUM) [Concomitant]
  12. VITAMIN E (TOCOPHERYL ACETATE) [Concomitant]

REACTIONS (2)
  - Chronic obstructive pulmonary disease [None]
  - Pneumonia [None]

NARRATIVE: CASE EVENT DATE: 20140415
